FAERS Safety Report 17027379 (Version 1)
Quarter: 2019Q4

REPORT INFORMATION
  Report Type: Spontaneous
  Country: US (occurrence: US)
  Receive Date: 20191010
  Receipt Date: 20191010
  Transmission Date: 20200122
  Serious: No
  Sender: FDA-Public Use
  Company Number: None

PATIENT
  Age: 71 Year
  Sex: Female

DRUGS (1)
  1. FORTEO [Suspect]
     Active Substance: TERIPARATIDE
     Route: 058
     Dates: start: 201905, end: 20191006

REACTIONS (5)
  - Constipation [None]
  - Weight decreased [None]
  - Vomiting [None]
  - Eating disorder [None]
  - Nausea [None]

NARRATIVE: CASE EVENT DATE: 20190810
